FAERS Safety Report 4283731-6 (Version None)
Quarter: 2004Q1

REPORT INFORMATION
  Report Type: 
  Country: None (occurrence: None)
  Receive Date: 20040130
  Receipt Date: 20040130
  Transmission Date: 20041129
  Serious: Yes (Death)
  Sender: FDA-Public Use
  Company Number: None

PATIENT
  Age: 83 Year
  Sex: Male

DRUGS (13)
  1. GEODON [Suspect]
     Indication: PSYCHOTIC DISORDER
     Dosage: 20 MG DAILY IM
     Route: 030
     Dates: start: 20030713, end: 20030715
  2. PENTOBARBITAL CAP [Concomitant]
  3. ANCEF [Concomitant]
  4. ZYVOX [Concomitant]
  5. XIGRIS [Concomitant]
  6. MULTIVITAMIN [Concomitant]
  7. METAMUCIL-2 [Concomitant]
  8. ASPIRIN [Concomitant]
  9. COLACE [Concomitant]
  10. DIAZIDE [Concomitant]
  11. LANOXIN [Concomitant]
  12. FUROSEMIDE [Concomitant]
  13. DOPAMINE [Concomitant]

REACTIONS (5)
  - MYOCARDIAL INFARCTION [None]
  - PNEUMONIA ASPIRATION [None]
  - RENAL FAILURE ACUTE [None]
  - RESPIRATORY FAILURE [None]
  - STAPHYLOCOCCAL SEPSIS [None]
